FAERS Safety Report 8109166-3 (Version None)
Quarter: 2012Q1

REPORT INFORMATION
  Report Type: 
  Country: None (occurrence: None)
  Receive Date: 20120202
  Receipt Date: 20120103
  Transmission Date: 20120608
  Serious: No
  Sender: FDA-Public Use
  Company Number: US-AMGEN-USASP2011025587

PATIENT
  Age: 64 Year
  Sex: Female

DRUGS (1)
  1. ENBREL [Suspect]
     Indication: RHEUMATOID ARTHRITIS
     Dosage: 25 MG, 2 TIMES/WK
     Route: 058
     Dates: start: 20110401, end: 20111204

REACTIONS (13)
  - MUSCLE ATROPHY [None]
  - INJECTION SITE REACTION [None]
  - FEELING ABNORMAL [None]
  - BLEPHAROSPASM [None]
  - INJECTION SITE SWELLING [None]
  - INJECTION SITE RASH [None]
  - PRURITUS [None]
  - INJECTION SITE WARMTH [None]
  - INJECTION SITE ERYTHEMA [None]
  - ERYTHEMA [None]
  - ABNORMAL SENSATION IN EYE [None]
  - EYELID DISORDER [None]
  - LOWER EXTREMITY MASS [None]
